FAERS Safety Report 9882621 (Version 1)
Quarter: 2014Q1

REPORT INFORMATION
  Report Type: Report from Study
  Country: CA (occurrence: CA)
  Receive Date: 20140207
  Receipt Date: 20140207
  Transmission Date: 20141002
  Serious: Yes (Other)
  Sender: FDA-Public Use
  Company Number: CA-009507513-1402CAN002511

PATIENT
  Age: 77 Year
  Sex: Female

DRUGS (2)
  1. NITROGLYCERIN [Suspect]
  2. SIMPONI [Suspect]
     Dosage: 50 MG, UNK
     Route: 058

REACTIONS (4)
  - Pruritus [Unknown]
  - Rib fracture [Unknown]
  - Fall [Unknown]
  - Herpes zoster [Unknown]
